FAERS Safety Report 24577117 (Version 3)
Quarter: 2025Q3

REPORT INFORMATION
  Report Type: Report from Study
  Country: JP (occurrence: JP)
  Receive Date: 20241104
  Receipt Date: 20250809
  Transmission Date: 20251020
  Serious: No
  Sender: ALEXION PHARMACEUTICALS
  Company Number: JP-ASTRAZENECA-240014339_011820_P_1

PATIENT
  Age: 5 Year
  Sex: Female
  Weight: 18.5 kg

DRUGS (5)
  1. KOSELUGO [Suspect]
     Active Substance: SELUMETINIB
     Indication: Neurofibroma
     Dosage: 20 MILLIGRAM, BID
     Dates: start: 20230823, end: 20231122
  2. KOSELUGO [Suspect]
     Active Substance: SELUMETINIB
     Dates: start: 20231123, end: 20231218
  3. KOSELUGO [Suspect]
     Active Substance: SELUMETINIB
     Dosage: 20 MILLIGRAM, BID
     Dates: start: 20231219, end: 20240124
  4. KOSELUGO [Suspect]
     Active Substance: SELUMETINIB
     Dosage: 20 MILLIGRAM, QD
     Dates: start: 20240125, end: 20240329
  5. KOSELUGO [Suspect]
     Active Substance: SELUMETINIB

REACTIONS (3)
  - Blood creatine phosphokinase increased [Recovered/Resolved]
  - Alopecia [Recovered/Resolved]
  - Folliculitis [Recovered/Resolved]

NARRATIVE: CASE EVENT DATE: 20231122
